FAERS Safety Report 9489594 (Version 2)
Quarter: 2013Q4

REPORT INFORMATION
  Report Type: Spontaneous
  Country: US (occurrence: US)
  Receive Date: 20130829
  Receipt Date: 20131028
  Transmission Date: 20140711
  Serious: Yes (Other)
  Sender: FDA-Public Use
  Company Number: CHPA2013US013344

PATIENT
  Age: 82 Year
  Sex: Female

DRUGS (3)
  1. VOLTAREN GEL [Suspect]
     Indication: ARTHRITIS
     Dosage: 4 G. BID-TID
     Route: 061
  2. TYLENOL EXTRA STRENGTH [Concomitant]
     Indication: PAIN
  3. VALIUM [Concomitant]
     Indication: PAIN
     Dosage: 2 MG, UNK

REACTIONS (3)
  - Fall [Unknown]
  - Pain [Not Recovered/Not Resolved]
  - Underdose [Unknown]
